FAERS Safety Report 13864708 (Version 2)
Quarter: 2017Q4

REPORT INFORMATION
  Report Type: Report from Study
  Country: ES (occurrence: ES)
  Receive Date: 20170814
  Receipt Date: 20171005
  Transmission Date: 20180320
  Serious: Yes (Hospitalization)
  Sender: FDA-Public Use
  Company Number: ES-JNJFOC-20170810982

PATIENT
  Age: 29 Year
  Sex: Female

DRUGS (1)
  1. GOLIMUMAB [Suspect]
     Active Substance: GOLIMUMAB
     Indication: PSORIATIC ARTHROPATHY
     Route: 058
     Dates: start: 20150414, end: 20170612

REACTIONS (3)
  - Urinary tract infection [Unknown]
  - Pyelonephritis acute [Recovered/Resolved]
  - Hypotonic urinary bladder [Unknown]

NARRATIVE: CASE EVENT DATE: 20160212
